FAERS Safety Report 23376387 (Version 1)
Quarter: 2024Q1

REPORT INFORMATION
  Report Type: Report from Study
  Country: US (occurrence: US)
  Receive Date: 20240108
  Receipt Date: 20240108
  Transmission Date: 20240410
  Serious: Yes (Hospitalization, Other)
  Sender: FDA-Public Use
  Company Number: US-ABBVIE-5572293

PATIENT
  Age: 67 Year
  Sex: Female
  Weight: 70 kg

DRUGS (7)
  1. SYNTHROID [Suspect]
     Active Substance: LEVOTHYROXINE SODIUM
     Indication: Autoimmune thyroiditis
     Dosage: FORM STRENGTH: 88 MICROGRAM?FREQUENCY TEXT: ONCE A DAY IN THE MORNING
     Route: 048
     Dates: start: 2019, end: 20231221
  2. SYNTHROID [Suspect]
     Active Substance: LEVOTHYROXINE SODIUM
     Indication: Autoimmune thyroiditis
     Dosage: FORM STRENGTH: 125 MICROGRAM?FREQUENCY TEXT: ONCE A DAY IN THE MORNING
     Route: 048
     Dates: start: 20231222
  3. HYDROXYCHLOROQUINE [Concomitant]
     Active Substance: HYDROXYCHLOROQUINE
     Indication: Osteoarthritis
     Dosage: FORM STRENGTH: 300 MILIGRAM
  4. METOPROLOL SUCCINATE [Concomitant]
     Active Substance: METOPROLOL SUCCINATE
     Indication: Heart rate increased
     Dosage: FORM STRENGTH: 25 MILLIGRAM, EXTENDED RELEASE
  5. MELOXICAM [Concomitant]
     Active Substance: MELOXICAM
     Indication: Osteoarthritis
     Dosage: FORM STRENGTH: 7.5 MILIGRAM
  6. PANTOPRAZOLE [Concomitant]
     Active Substance: PANTOPRAZOLE
     Indication: Gastrooesophageal reflux disease
  7. LOSARTAN [Concomitant]
     Active Substance: LOSARTAN
     Indication: Hypertension

REACTIONS (1)
  - Benign neoplasm of thyroid gland [Recovered/Resolved]

NARRATIVE: CASE EVENT DATE: 20220901
